FAERS Safety Report 20291530 (Version 1)
Quarter: 2022Q1

REPORT INFORMATION
  Report Type: Spontaneous
  Country: US (occurrence: None)
  Receive Date: 20220103
  Receipt Date: 20220103
  Transmission Date: 20220423
  Serious: Yes (Other)
  Sender: FDA-Public Use
  Company Number: None

PATIENT
  Sex: Female

DRUGS (4)
  1. IMATINIB MESYLATE [Suspect]
     Active Substance: IMATINIB MESYLATE
     Indication: Chronic myeloid leukaemia
     Dosage: ? TAKE 1 TABLET BY MOUTH DAILY
     Route: 048
     Dates: start: 20160408
  2. ALLOPURINOL [Concomitant]
     Active Substance: ALLOPURINOL
  3. ENTRESTO TAB [Concomitant]
  4. NITROGLYCER DIS [Concomitant]

REACTIONS (1)
  - Cerebrovascular accident [None]
